FAERS Safety Report 7264113-1 (Version None)
Quarter: 2011Q1

REPORT INFORMATION
  Report Type: 
  Country: None (occurrence: None)
  Receive Date: 20110130
  Receipt Date: 20110118
  Transmission Date: 20110831
  Serious: Yes (Other)
  Sender: FDA-Public Use
  Company Number: JP-BRISTOL-MYERS SQUIBB COMPANY-15491343

PATIENT
  Age: 79 Year
  Sex: Male

DRUGS (7)
  1. OMEPRAZOLE [Concomitant]
     Indication: REFLUX OESOPHAGITIS
     Route: 048
     Dates: start: 20090414
  2. REBAMIPIDE [Concomitant]
     Indication: GASTRITIS
     Route: 048
     Dates: start: 20090414
  3. BEZALEX [Concomitant]
     Indication: HYPERLIPIDAEMIA
     Route: 048
     Dates: start: 19980217
  4. AMARYL [Suspect]
     Indication: DIABETES MELLITUS
     Route: 048
     Dates: start: 20100302
  5. ACTOS [Suspect]
     Indication: DIABETES MELLITUS
     Route: 048
     Dates: start: 20100302
  6. METGLUCO [Suspect]
     Indication: DIABETES MELLITUS
     Route: 048
     Dates: start: 20100907, end: 20110111
  7. HYZAAR [Suspect]
     Indication: HYPERTENSION
     Dosage: 1 DF:3 DF
     Route: 048
     Dates: start: 20070319

REACTIONS (2)
  - HYPOGLYCAEMIA [None]
  - HYPERKALAEMIA [None]
